FAERS Safety Report 10205745 (Version 1)
Quarter: 2014Q2

REPORT INFORMATION
  Report Type: Spontaneous
  Country: US (occurrence: US)
  Receive Date: 20140530
  Receipt Date: 20140530
  Transmission Date: 20141212
  Serious: Yes (Hospitalization)
  Sender: FDA-Public Use
  Company Number: US-BEH-2014042771

PATIENT
  Sex: Male

DRUGS (1)
  1. ZEMAIRA [Suspect]

REACTIONS (1)
  - Investigation [Unknown]
